FAERS Safety Report 8535196 (Version 3)
Quarter: 2012Q4

REPORT INFORMATION
  Report Type: 
  Country: US (occurrence: US)
  Receive Date: 20120427
  Receipt Date: 20120924
  Transmission Date: 20130627
  Serious: Yes (Other)
  Sender: FDA-Public Use
  Company Number: US-RB-039589-12

PATIENT
  Age: 0 None
  Sex: Male
  Weight: 11 kg

DRUGS (5)
  1. SUBOXONE TABLETS [Suspect]
     Indication: DRUG DEPENDENCE
     Route: 064
     Dates: start: 201105, end: 201107
  2. GENERIC BUPRENORPHINE [Suspect]
     Dosage: various doses daily
     Route: 064
     Dates: start: 201107, end: 20120213
  3. GENERIC BUPRENORPHINE [Suspect]
     Indication: DRUG DEPENDENCE
     Dosage: 8 and 2 mg unit doses/ 14 mg daily
     Route: 063
     Dates: start: 20120215, end: 201206
  4. SUBOXONE FILM [Suspect]
     Indication: DRUG DEPENDENCE
     Dosage: Suboxone film; 2 and 8 mg unit doses/14 mg daily
     Route: 063
     Dates: start: 201206, end: 20120801
  5. OPIATES [Suspect]
     Indication: PAIN
     Dosage: Unknown dosage details
     Route: 063
     Dates: start: 20120215, end: 20120224

REACTIONS (7)
  - Foetal exposure during pregnancy [Recovered/Resolved]
  - Blood glucose decreased [Recovered/Resolved]
  - Large for dates baby [Recovered/Resolved]
  - Contusion [Recovered/Resolved]
  - Exposure during breast feeding [Recovered/Resolved]
  - Jaundice neonatal [Recovered/Resolved]
  - Dermatitis diaper [Recovered/Resolved]
